FAERS Safety Report 4970871-9 (Version None)
Quarter: 2006Q2

REPORT INFORMATION
  Report Type: 
  Country: None (occurrence: None)
  Receive Date: 20060412
  Receipt Date: 20060412
  Transmission Date: 20061013
  Serious: Yes (Hospitalization, Other)
  Sender: FDA-Public Use
  Company Number: None

PATIENT
  Sex: Female
  Weight: 63 kg

DRUGS (2)
  1. CISPLATIN [Suspect]
     Indication: CERVIX CARCINOMA
     Dosage: 81.5 MG
     Dates: start: 20060321, end: 20060321
  2. TAXOL [Suspect]
     Dosage: 220 MG
     Dates: start: 20060320, end: 20060321

REACTIONS (5)
  - COUGH [None]
  - DYSURIA [None]
  - FEBRILE NEUTROPENIA [None]
  - NASAL CONGESTION [None]
  - PHARYNGOLARYNGEAL PAIN [None]
